FAERS Safety Report 10387335 (Version 2)
Quarter: 2014Q3

REPORT INFORMATION
  Report Type: Spontaneous
  Country: US (occurrence: US)
  Receive Date: 20140815
  Receipt Date: 20140815
  Transmission Date: 20150326
  Serious: Yes (Hospitalization, Other)
  Sender: FDA-Public Use
  Company Number: US-TEVA-496806USA

PATIENT
  Sex: Female

DRUGS (1)
  1. COPAXONE [Suspect]
     Active Substance: GLATIRAMER ACETATE
     Indication: MULTIPLE SCLEROSIS
     Route: 065

REACTIONS (7)
  - Headache [Unknown]
  - Hypertension [Unknown]
  - Nausea [Unknown]
  - Adverse event [Unknown]
  - Hypersensitivity [Unknown]
  - Urticaria [Unknown]
  - Erythema [Unknown]

NARRATIVE: CASE EVENT DATE: 201007
